FAERS Safety Report 25708825 (Version 1)
Quarter: 2025Q3

REPORT INFORMATION
  Report Type: Spontaneous
  Country: CA (occurrence: CA)
  Receive Date: 20250821
  Receipt Date: 20250821
  Transmission Date: 20251021
  Serious: Yes (Other)
  Sender: TEVA
  Company Number: CA-TEVA-VS-3365164

PATIENT
  Age: 75 Year
  Sex: Male

DRUGS (1)
  1. DONEPEZIL [Suspect]
     Active Substance: DONEPEZIL
     Indication: Cognitive disorder
     Route: 065

REACTIONS (2)
  - Clonus [Recovered/Resolved]
  - Condition aggravated [Recovered/Resolved]
